FAERS Safety Report 21272667 (Version 1)
Quarter: 2022Q3

REPORT INFORMATION
  Report Type: Spontaneous
  Country: US (occurrence: US)
  Receive Date: 20220830
  Receipt Date: 20220830
  Transmission Date: 20221027
  Serious: No
  Sender: FDA-Public Use
  Company Number: US-BEH-2022149038

PATIENT
  Age: 33 Year
  Sex: Female

DRUGS (10)
  1. PRIVIGEN [Suspect]
     Active Substance: HUMAN IMMUNOGLOBULIN G
     Indication: Chronic inflammatory demyelinating polyradiculoneuropathy
     Dosage: 55 GRAM, Q3W
     Route: 042
     Dates: start: 202208
  2. GABAPENTIN [Concomitant]
     Active Substance: GABAPENTIN
  3. LYRICA [Concomitant]
     Active Substance: PREGABALIN
  4. MAGNESIUM [Concomitant]
     Active Substance: MAGNESIUM
  5. VITAMINS [Concomitant]
     Active Substance: VITAMINS
  6. NORTRIPTYLINE [Concomitant]
     Active Substance: NORTRIPTYLINE
  7. OXYCODONE HYDROCHLORIDE [Concomitant]
     Active Substance: OXYCODONE HYDROCHLORIDE
  8. VITAMIN B1 [Concomitant]
     Active Substance: THIAMINE HYDROCHLORIDE
  9. VITAMIN B12 [Concomitant]
     Active Substance: CYANOCOBALAMIN
  10. XANAX [Concomitant]
     Active Substance: ALPRAZOLAM

REACTIONS (1)
  - Headache [Recovered/Resolved]

NARRATIVE: CASE EVENT DATE: 20220801
